FAERS Safety Report 8019136-1 (Version None)
Quarter: 2011Q4

REPORT INFORMATION
  Report Type: 
  Country: None (occurrence: None)
  Receive Date: 20111229
  Receipt Date: 20111214
  Transmission Date: 20120403
  Serious: Yes (Hospitalization)
  Sender: FDA-Public Use
  Company Number: DAV-AE-MTX-11-068

PATIENT
  Age: 43 Year
  Sex: Female
  Weight: 73.9363 kg

DRUGS (10)
  1. HYDROCHLOROTHIAZIDE [Concomitant]
  2. FOLIC ACID [Concomitant]
  3. VALSARTAN [Concomitant]
  4. HUMIRA [Concomitant]
  5. ESOMEPRAZOLE SODIOUM [Concomitant]
  6. METHOTREXATE [Suspect]
     Indication: RHEUMATOID ARTHRITIS
     Dosage: ORAL
     Route: 048
     Dates: start: 20110527
  7. CO-DIOVAN (TABLETS) [Concomitant]
  8. METOPROLOL SUCCINATE [Concomitant]
  9. ASPIRIN [Concomitant]
  10. HYDROXYCHLOROQUINE SULFATE [Concomitant]

REACTIONS (3)
  - ASTHENIA [None]
  - CONDITION AGGRAVATED [None]
  - ANAEMIA [None]
